FAERS Safety Report 5065520-8 (Version None)
Quarter: 2006Q3

REPORT INFORMATION
  Report Type: 
  Country: None (occurrence: None)
  Receive Date: 20060731
  Receipt Date: 20040714
  Transmission Date: 20061208
  Serious: Yes (Hospitalization)
  Sender: FDA-Public Use
  Company Number: US-GLAXOSMITHKLINE-A0519023A

PATIENT
  Age: 16 Year
  Sex: Female

DRUGS (4)
  1. PAXIL [Suspect]
     Indication: DEPRESSION
     Dosage: 20MG PER DAY
     Route: 048
     Dates: start: 20000309, end: 20000411
  2. TRAZODONE HCL [Suspect]
     Dosage: 350MG SINGLE DOSE
     Route: 048
  3. TYLENOL W/ CODEINE [Suspect]
  4. TRAZODONE HCL [Concomitant]
     Indication: INSOMNIA
     Dates: start: 20000309, end: 20000401

REACTIONS (18)
  - ABNORMAL BEHAVIOUR [None]
  - AGITATION [None]
  - AKATHISIA [None]
  - DEPERSONALISATION [None]
  - DIZZINESS [None]
  - FATIGUE [None]
  - FEELING JITTERY [None]
  - FEELING OF DESPAIR [None]
  - FLAT AFFECT [None]
  - HEADACHE [None]
  - INSOMNIA [None]
  - INTENTIONAL OVERDOSE [None]
  - SOCIAL AVOIDANT BEHAVIOUR [None]
  - SOMNOLENCE [None]
  - SUICIDAL IDEATION [None]
  - SUICIDE ATTEMPT [None]
  - SYNCOPE [None]
  - TREMOR [None]
